FAERS Safety Report 9957806 (Version 1)
Quarter: 2014Q1

REPORT INFORMATION
  Report Type: Report from Study
  Country: US (occurrence: US)
  Receive Date: 20140304
  Receipt Date: 20140304
  Transmission Date: 20141002
  Serious: No
  Sender: FDA-Public Use
  Company Number: US-ABBVIE-13P-163-1092730-00

PATIENT
  Sex: Female
  Weight: 65.83 kg

DRUGS (11)
  1. HUMIRA [Suspect]
     Indication: PUSTULAR PSORIASIS
     Dates: start: 2011
  2. HUMIRA [Suspect]
     Indication: PUSTULAR PSORIASIS
     Dates: end: 201301
  3. PSORIATANE [Concomitant]
     Indication: PUSTULAR PSORIASIS
  4. METFORMIN [Concomitant]
     Indication: DIABETES MELLITUS
  5. ATORVASTATIN [Concomitant]
     Indication: BLOOD CHOLESTEROL INCREASED
  6. BABY ASPIRIN [Concomitant]
     Indication: CARDIOVASCULAR EVENT PROPHYLAXIS
  7. VITAMIN D AND ANALOGUES [Concomitant]
     Indication: VITAMIN SUPPLEMENTATION
  8. CALCIUM [Concomitant]
     Indication: MINERAL SUPPLEMENTATION
  9. PROLIA [Concomitant]
     Indication: OSTEOPOROSIS
  10. VITAMIN B12 NOS [Concomitant]
     Indication: VITAMIN SUPPLEMENTATION
  11. FOLIC ACID [Concomitant]
     Indication: VITAMIN SUPPLEMENTATION

REACTIONS (1)
  - Pustular psoriasis [Not Recovered/Not Resolved]
